FAERS Safety Report 5386862-2 (Version None)
Quarter: 2007Q3

REPORT INFORMATION
  Report Type: 
  Country: None (occurrence: None)
  Receive Date: 20070713
  Receipt Date: 20070613
  Transmission Date: 20080115
  Serious: Yes (Other)
  Sender: FDA-Public Use
  Company Number: NL-PFIZER INC-2007036664

PATIENT
  Sex: Female
  Weight: 62 kg

DRUGS (8)
  1. XANAX [Suspect]
     Indication: NERVOUSNESS
     Route: 048
  2. XANAX [Suspect]
     Indication: DYSKINESIA
  3. CODEINE PHOSPHATE AND ACETAMINOPHEN [Concomitant]
     Route: 048
  4. ATENOLOL [Concomitant]
     Route: 048
     Dates: start: 20060410, end: 20070312
  5. PAROXETINE [Concomitant]
     Route: 048
  6. LIPITOR [Concomitant]
     Route: 048
  7. SOTALOL HYDROCHLORIDE [Concomitant]
     Route: 048
  8. COZAAR [Concomitant]
     Route: 048

REACTIONS (7)
  - ARTERIOSCLEROSIS [None]
  - COGNITIVE DISORDER [None]
  - COORDINATION ABNORMAL [None]
  - HEART RATE INCREASED [None]
  - HYPERCHOLESTEROLAEMIA [None]
  - HYPERTENSION [None]
  - MOTOR DYSFUNCTION [None]
